FAERS Safety Report 9186548 (Version 3)
Quarter: 2013Q2

REPORT INFORMATION
  Report Type: Report from Study
  Country: FR (occurrence: FR)
  Receive Date: 20130325
  Receipt Date: 20130412
  Transmission Date: 20140414
  Serious: Yes (Hospitalization)
  Sender: FDA-Public Use
  Company Number: FR-MILLENNIUM PHARMACEUTICALS, INC.-2013-02137

PATIENT
  Sex: 0

DRUGS (18)
  1. VELCADE [Suspect]
     Indication: PLASMA CELL MYELOMA
     Dosage: 2.80 MG, UNK
     Route: 065
     Dates: start: 20111128, end: 20120507
  2. REVLIMID [Suspect]
     Indication: PLASMA CELL MYELOMA
     Dosage: 25 MG, UNK
     Route: 065
     Dates: start: 20111128, end: 20120508
  3. DEXAMETHASONE [Suspect]
     Indication: PLASMA CELL MYELOMA
     Dosage: 10 MG, UNK
     Route: 065
     Dates: start: 20111128, end: 20120421
  4. OXYCONTIN [Concomitant]
     Indication: BONE PAIN
     Dosage: 20 MG, UNK
     Dates: start: 20111109
  5. OXYNORM [Concomitant]
     Indication: BONE PAIN
     Dosage: 5 MG, UNK
     Dates: start: 20111109
  6. LAROXYL [Concomitant]
     Indication: BONE PAIN
     Dosage: 30 UNK, UNK
     Dates: start: 20111111
  7. XANAX [Concomitant]
     Indication: ANXIETY
     Dosage: UNK
     Dates: start: 20111109
  8. AMLOR [Concomitant]
     Indication: OEDEMA PERIPHERAL
     Dosage: UNK
     Dates: start: 20111109
  9. FORLAX [Concomitant]
     Indication: CONSTIPATION
     Dosage: UNK
     Dates: start: 20111110
  10. BACTRIM [Concomitant]
     Dosage: UNK
     Dates: start: 20111111
  11. LEDERFOLIN                         /00566702/ [Concomitant]
     Dosage: UNK
     Dates: start: 20111112
  12. ZELITREX                           /01269701/ [Concomitant]
     Dosage: 500 MG, UNK
     Dates: start: 20111110
  13. LOVENOX [Concomitant]
     Dosage: UNK
     Route: 058
     Dates: start: 20111109
  14. ORACILLINE                         /00001801/ [Concomitant]
     Dosage: UNK
     Dates: start: 20111128
  15. ABILIFY [Concomitant]
  16. TEMESTA                            /00273201/ [Concomitant]
     Dosage: 1 MG, UNK
  17. BACLOFENE IREX [Concomitant]
  18. MOTILIUM                           /00498201/ [Concomitant]
     Dosage: UNK

REACTIONS (1)
  - Hidradenitis [Recovered/Resolved]
